FAERS Safety Report 11323087 (Version 2)
Quarter: 2015Q4

REPORT INFORMATION
  Report Type: Spontaneous
  Country: FR (occurrence: FR)
  Receive Date: 20150730
  Receipt Date: 20151229
  Transmission Date: 20160304
  Serious: No
  Sender: FDA-Public Use
  Company Number: FR-ROCHE-1615246

PATIENT
  Sex: Female
  Weight: 61 kg

DRUGS (1)
  1. HERCEPTIN [Suspect]
     Active Substance: TRASTUZUMAB
     Indication: BREAST CANCER
     Route: 058

REACTIONS (1)
  - Oropharyngeal pain [Recovered/Resolved]

NARRATIVE: CASE EVENT DATE: 20141126
